FAERS Safety Report 15710838 (Version 1)
Quarter: 2018Q4

REPORT INFORMATION
  Report Type: Spontaneous
  Country: US (occurrence: US)
  Receive Date: 20181211
  Receipt Date: 20181211
  Transmission Date: 20190205
  Serious: Yes (Other)
  Sender: FDA-Public Use
  Company Number: US-SA-2018SA331448

PATIENT
  Age: 43 Year
  Sex: Female
  Weight: 58 kg

DRUGS (16)
  1. IBUPROFEN. [Concomitant]
     Active Substance: IBUPROFEN
     Dosage: UNK UNK, UNK
     Dates: start: 20110925, end: 20170925
  2. MUPIROCIN. [Concomitant]
     Active Substance: MUPIROCIN
     Dosage: UNK UNK, UNK
     Dates: start: 20110925, end: 20170925
  3. TAXOTERE [Suspect]
     Active Substance: DOCETAXEL
     Indication: BREAST CANCER FEMALE
     Dosage: 120 MG, Q3W
     Route: 042
     Dates: start: 20141128, end: 20141128
  4. CLOTRIMAZOLE. [Concomitant]
     Active Substance: CLOTRIMAZOLE
     Dosage: UNK UNK, UNK
     Dates: start: 20110925, end: 20170925
  5. TAXOTERE [Suspect]
     Active Substance: DOCETAXEL
     Dosage: 120 UNK, Q3W
     Route: 042
     Dates: start: 20150109, end: 20150109
  6. HYDROCODONE BITARTRATE AND ACETAMINOPHEN [Concomitant]
     Active Substance: ACETAMINOPHEN\HYDROCODONE BITARTRATE
     Dosage: UNK UNK, UNK
     Dates: start: 20110925, end: 20170925
  7. TRIAMCINOLONE [Concomitant]
     Active Substance: TRIAMCINOLONE
     Dosage: UNK UNK, UNK
     Dates: start: 20110925, end: 20170925
  8. CIPROFLOXACIN. [Concomitant]
     Active Substance: CIPROFLOXACIN
     Dosage: UNK, UNK
     Dates: start: 20110925, end: 20170925
  9. SILVER SULFADIAZIN [Concomitant]
     Active Substance: SILVER SULFADIAZINE
     Dosage: UNK, UNK
     Dates: start: 20110925, end: 20170925
  10. ANASTROZOLE. [Concomitant]
     Active Substance: ANASTROZOLE
     Dosage: UNK UNK, UNK
     Dates: start: 20110925, end: 20170925
  11. CYCLOPHOSPHAMIDE. [Concomitant]
     Active Substance: CYCLOPHOSPHAMIDE
     Dosage: EVERY 2 WEEKS FOR 4 CYCLES
     Route: 065
  12. CARVEDILOL. [Concomitant]
     Active Substance: CARVEDILOL
     Dosage: UNK UNK, UNK
     Dates: start: 20110925, end: 20170925
  13. POTASSIUM CHLORIDE. [Concomitant]
     Active Substance: POTASSIUM CHLORIDE
     Dosage: UNK UNK, UNK
     Dates: start: 20110925, end: 20170925
  14. ADRIAMYCIN [Concomitant]
     Active Substance: DOXORUBICIN HYDROCHLORIDE
     Dosage: EVERY 2 WEEKS FOR 4 CYCLES
     Route: 065
  15. METRONIDAZOLE. [Concomitant]
     Active Substance: METRONIDAZOLE
     Dosage: UNK UNK, UNK
     Dates: start: 20110925, end: 20170925
  16. LOSARTAN. [Concomitant]
     Active Substance: LOSARTAN
     Dosage: UNK UNK, UNK
     Dates: start: 20110925, end: 20170925

REACTIONS (3)
  - Psychological trauma [Unknown]
  - Alopecia [Recovering/Resolving]
  - Anxiety [Not Recovered/Not Resolved]

NARRATIVE: CASE EVENT DATE: 20150709
